FAERS Safety Report 11220427 (Version 1)
Quarter: 2015Q2

REPORT INFORMATION
  Report Type: Spontaneous
  Country: US (occurrence: None)
  Receive Date: 20150625
  Receipt Date: 20150625
  Transmission Date: 20150821
  Serious: Yes (Hospitalization)
  Sender: FDA-Public Use
  Company Number: None

PATIENT
  Age: 67 Year
  Sex: Male
  Weight: 74.2 kg

DRUGS (1)
  1. HYDROCHLOROTHIAZIDE/LISINOPRIL [Suspect]
     Active Substance: HYDROCHLOROTHIAZIDE\LISINOPRIL
     Indication: HYPERTENSION
     Dosage: 25/20 MG
     Route: 048
     Dates: start: 20150310, end: 20150320

REACTIONS (2)
  - Angioedema [None]
  - Oropharyngeal pain [None]

NARRATIVE: CASE EVENT DATE: 20150320
